FAERS Safety Report 7445698-9 (Version None)
Quarter: 2011Q2

REPORT INFORMATION
  Report Type: 
  Country: None (occurrence: None)
  Receive Date: 20110429
  Receipt Date: 20100409
  Transmission Date: 20111010
  Serious: No
  Sender: FDA-Public Use
  Company Number: US-ASTRAZENECA-2010SE16102

PATIENT
  Age: 20308 Day
  Sex: Female
  Weight: 108 kg

DRUGS (3)
  1. SYNTHROID [Concomitant]
  2. NEXIUM [Suspect]
     Indication: DYSPEPSIA
     Route: 048
  3. NEXIUM [Suspect]
     Route: 048
     Dates: start: 20100409

REACTIONS (5)
  - CHEST PAIN [None]
  - HEART RATE ABNORMAL [None]
  - ACCIDENTAL OVERDOSE [None]
  - SOMNOLENCE [None]
  - FEELING JITTERY [None]
